FAERS Safety Report 5408690-1 (Version None)
Quarter: 2007Q3

REPORT INFORMATION
  Report Type: 
  Country: None (occurrence: None)
  Receive Date: 20070808
  Receipt Date: 20070802
  Transmission Date: 20080115
  Serious: Yes (Disabling, Other)
  Sender: FDA-Public Use
  Company Number: A0667881A

PATIENT
  Age: 55 Year
  Sex: Female

DRUGS (13)
  1. LAMICTAL [Suspect]
     Route: 048
     Dates: start: 20060914, end: 20070301
  2. ZOLOFT [Concomitant]
  3. NEXIUM [Concomitant]
  4. FISH OILS [Concomitant]
  5. MULTI-VITAMIN [Concomitant]
  6. GINKO [Concomitant]
  7. BACTROBAN [Concomitant]
  8. STEROID CREAM [Concomitant]
  9. CREAM [Concomitant]
  10. RETIN-A [Concomitant]
  11. CLINDAMYCIN HCL [Concomitant]
  12. FOLINIC ACID [Concomitant]
  13. SOLPADEINE [Concomitant]

REACTIONS (7)
  - DISABILITY [None]
  - FOLLICULITIS [None]
  - RASH [None]
  - SCAR [None]
  - SKIN EROSION [None]
  - SKIN INFLAMMATION [None]
  - SKIN LESION [None]
